FAERS Safety Report 26022129 (Version 1)
Quarter: 2025Q4

REPORT INFORMATION
  Report Type: Spontaneous
  Country: CN (occurrence: CN)
  Receive Date: 20251110
  Receipt Date: 20251110
  Transmission Date: 20260118
  Serious: Yes (Hospitalization, Other)
  Sender: MERCK SHARP & DOHME LLC
  Company Number: CN-009507513-2348097

PATIENT
  Age: 61 Year
  Sex: Male

DRUGS (1)
  1. CILASTATIN SODIUM\IMIPENEM [Suspect]
     Active Substance: CILASTATIN SODIUM\IMIPENEM
     Indication: Pneumonia
     Dosage: TIME INTERVAL: 0.33333333 DAYS
     Route: 041
     Dates: start: 20251007, end: 20251015

REACTIONS (10)
  - Haematochezia [Not Recovered/Not Resolved]
  - Chronic obstructive pulmonary disease [Unknown]
  - Urogenital infection fungal [Unknown]
  - Lower respiratory tract infection [Unknown]
  - Candida infection [Unknown]
  - Interstitial lung disease [Unknown]
  - Pulmonary bulla [Unknown]
  - Klebsiella sepsis [Unknown]
  - Acute respiratory failure [Unknown]
  - Pneumonia pseudomonal [Unknown]

NARRATIVE: CASE EVENT DATE: 20251001
